FAERS Safety Report 12678269 (Version 1)
Quarter: 2016Q3

REPORT INFORMATION
  Report Type: Spontaneous
  Country: US (occurrence: US)
  Receive Date: 20160823
  Receipt Date: 20160823
  Transmission Date: 20161109
  Serious: No
  Sender: FDA-Public Use
  Company Number: US-ASTRAZENECA-2016SE38459

PATIENT
  Age: 22611 Day
  Sex: Female
  Weight: 56.7 kg

DRUGS (9)
  1. CYCLOBENZAPINE [Concomitant]
  2. DOXEPIN [Concomitant]
     Active Substance: DOXEPIN
     Dosage: 3-6 MG AS NEEDED
  3. SYMBICORT [Suspect]
     Active Substance: BUDESONIDE\FORMOTEROL FUMARATE DIHYDRATE
     Indication: CHRONIC OBSTRUCTIVE PULMONARY DISEASE
     Dosage: 160 MCG 2 PUFFS TWICE DAILY
     Route: 055
     Dates: start: 20160406
  4. NORCO [Concomitant]
     Active Substance: ACETAMINOPHEN\HYDROCODONE BITARTRATE
  5. ALBUTEROL. [Concomitant]
     Active Substance: ALBUTEROL
     Dosage: 4-6 TIMES PER DAY AS NEEDED
  6. TUDORZA PRESSAIR [Suspect]
     Active Substance: ACLIDINIUM BROMIDE
     Indication: CHRONIC OBSTRUCTIVE PULMONARY DISEASE
     Dosage: 400 MCG 1 PUFF EVERY 12 HOURS
     Route: 055
     Dates: start: 20160406
  7. TUDORZA PRESSAIR [Suspect]
     Active Substance: ACLIDINIUM BROMIDE
     Indication: EMPHYSEMA
     Dosage: 400 MCG ONE PUFF TWO TIMES A DAY
     Route: 055
     Dates: start: 20160406
  8. TUDORZA PRESSAIR [Suspect]
     Active Substance: ACLIDINIUM BROMIDE
     Indication: CHRONIC OBSTRUCTIVE PULMONARY DISEASE
     Dosage: 400 MCG ONE PUFF TWO TIMES A DAY
     Route: 055
     Dates: start: 20160406
  9. TUDORZA PRESSAIR [Suspect]
     Active Substance: ACLIDINIUM BROMIDE
     Indication: EMPHYSEMA
     Dosage: 400 MCG 1 PUFF EVERY 12 HOURS
     Route: 055
     Dates: start: 20160406

REACTIONS (3)
  - Oropharyngeal pain [Unknown]
  - Drug dose omission [Unknown]
  - Product quality issue [Unknown]

NARRATIVE: CASE EVENT DATE: 20160604
